FAERS Safety Report 16123755 (Version 5)
Quarter: 2020Q3

REPORT INFORMATION
  Report Type: Report from Study
  Country: GB (occurrence: GB)
  Receive Date: 20190327
  Receipt Date: 20200917
  Transmission Date: 20201102
  Serious: Yes (Other)
  Sender: FDA-Public Use
  Company Number: GB-MYLANLABS-2019M1026994

PATIENT
  Age: 51 Year
  Sex: Female

DRUGS (26)
  1. DOCETAXEL. [Suspect]
     Active Substance: DOCETAXEL
     Indication: BREAST CANCER METASTATIC
     Dosage: 130 MILLIGRAM, Q3W
     Route: 042
     Dates: start: 20160511, end: 20160808
  2. PERTUZUMAB. [Suspect]
     Active Substance: PERTUZUMAB
     Indication: BREAST CANCER METASTATIC
     Dosage: 840 MILLIGRAM, Q3W (LOADING DOSE)
     Route: 042
     Dates: start: 20160510, end: 20160510
  3. PREGABALIN. [Concomitant]
     Active Substance: PREGABALIN
     Dosage: UNK
  4. CYCLIZINE [Concomitant]
     Active Substance: CYCLIZINE
     Dosage: 50 MILLIGRAM
     Route: 048
     Dates: start: 20160627, end: 20160830
  5. TRASTUZUMAB. [Suspect]
     Active Substance: TRASTUZUMAB
     Dosage: 367.5 MILLIGRAM, Q3W
     Route: 042
     Dates: start: 20160920, end: 20170110
  6. TRASTUZUMAB. [Suspect]
     Active Substance: TRASTUZUMAB
     Dosage: 346.5 MILLIGRAM, Q3W
     Route: 042
     Dates: start: 20170517, end: 20170703
  7. SEVREDOL [Concomitant]
     Active Substance: MORPHINE
     Dosage: UNK
     Route: 065
  8. IRON [Concomitant]
     Active Substance: IRON
     Dosage: UNK
     Route: 048
  9. CODEINE PHOSPHATE [Concomitant]
     Active Substance: CODEINE PHOSPHATE
     Dosage: 60 MILLIGRAM
     Route: 048
     Dates: start: 20161101, end: 20161101
  10. CHLORPHENAMINE [Concomitant]
     Active Substance: CHLORPHENIRAMINE MALEATE
     Dosage: 4 MILLIGRAM
     Route: 048
     Dates: start: 20160627, end: 20160830
  11. SEVREDOL [Concomitant]
     Active Substance: MORPHINE
     Dosage: 10 MILLIGRAM, QD
     Route: 048
     Dates: start: 20161101, end: 20161102
  12. ANASTROZOLE. [Suspect]
     Active Substance: ANASTROZOLE
     Indication: BREAST CANCER METASTATIC
     Dosage: 1 MILLIGRAM, QD
     Route: 048
     Dates: start: 20170127
  13. TRASTUZUMAB. [Suspect]
     Active Substance: TRASTUZUMAB
     Dosage: 388.5 MILLIGRAM
     Route: 042
     Dates: start: 20160606, end: 20160606
  14. PARACETAMOL [Concomitant]
     Active Substance: ACETAMINOPHEN
     Dosage: UNK
     Route: 048
  15. METOCLOPRAMIDE. [Concomitant]
     Active Substance: METOCLOPRAMIDE
     Dosage: 10 MILLIGRAM
     Route: 048
     Dates: start: 20160511, end: 20160830
  16. TRASTUZUMAB. [Suspect]
     Active Substance: TRASTUZUMAB
     Indication: PRODUCT USED FOR UNKNOWN INDICATION
     Dosage: 525 MILLIGRAM, Q3W (LOADING DOSE)
     Route: 042
     Dates: start: 20160510, end: 20160510
  17. TRASTUZUMAB. [Suspect]
     Active Substance: TRASTUZUMAB
     Dosage: 336 MILLIGRAM, Q3W
     Route: 042
     Dates: start: 20170724
  18. PERTUZUMAB. [Suspect]
     Active Substance: PERTUZUMAB
     Dosage: 420 MILLIGRAM, Q3W
     Route: 042
     Dates: start: 20160606
  19. ENOXAPARIN [Concomitant]
     Active Substance: ENOXAPARIN
     Dosage: 40 MILLIGRAM
     Route: 058
     Dates: start: 20161101, end: 20161101
  20. SEVREDOL [Concomitant]
     Active Substance: MORPHINE
     Dosage: 10 MG 0.5 DAY
     Route: 048
     Dates: start: 20161101, end: 20161102
  21. TRASTUZUMAB. [Suspect]
     Active Substance: TRASTUZUMAB
     Dosage: 378 MILLIGRAM
     Route: 042
     Dates: start: 20160627, end: 20160627
  22. TRASTUZUMAB. [Suspect]
     Active Substance: TRASTUZUMAB
     Dosage: 388.5 MILLIGRAM, Q3W
     Route: 042
     Dates: start: 20160718, end: 20160830
  23. TRASTUZUMAB. [Suspect]
     Active Substance: TRASTUZUMAB
     Dosage: 357 MILLIGRAM, Q3W
     Route: 042
     Dates: start: 20170201, end: 20170426
  24. DOCETAXEL. [Suspect]
     Active Substance: DOCETAXEL
     Dosage: 120 MILLIGRAM, Q3W
     Route: 042
     Dates: start: 20160808
  25. ZOMORPH [Concomitant]
     Active Substance: MORPHINE SULFATE
     Dosage: 60 MILLIGRAM, QD
     Route: 048
  26. DEXAMETHASONE. [Concomitant]
     Active Substance: DEXAMETHASONE
     Dosage: 8 MILLIGRAM
     Route: 048
     Dates: start: 20160511, end: 20160830

REACTIONS (6)
  - Ejection fraction decreased [Not Recovered/Not Resolved]
  - Haemoglobin decreased [Recovered/Resolved]
  - Neutropenia [Recovered/Resolved]
  - Rhinorrhoea [Not Recovered/Not Resolved]
  - Lower respiratory tract infection [Recovered/Resolved]
  - Lacrimation increased [Recovered/Resolved]

NARRATIVE: CASE EVENT DATE: 20160715
